FAERS Safety Report 15819982 (Version 1)
Quarter: 2019Q1

REPORT INFORMATION
  Report Type: Spontaneous
  Country: US (occurrence: US)
  Receive Date: 20190114
  Receipt Date: 20190114
  Transmission Date: 20190417
  Serious: No
  Sender: FDA-Public Use
  Company Number: US-BAYER-2019-005972

PATIENT
  Age: 48 Year
  Sex: Female
  Weight: 68.03 kg

DRUGS (4)
  1. FIBERCON [Concomitant]
     Active Substance: CALCIUM POLYCARBOPHIL
  2. PSYLLIUM HYDROPHILIC MUCILLOID [Concomitant]
     Active Substance: PSYLLIUM HUSK
  3. MIRALAX [Suspect]
     Active Substance: POLYETHYLENE GLYCOL 3350
     Indication: GASTROINTESTINAL DISORDER
     Dosage: UNK, PROLAPSE IN RECTUM
     Dates: start: 201712
  4. COLACE [Concomitant]
     Active Substance: DOCUSATE SODIUM

REACTIONS (2)
  - Product use in unapproved indication [Unknown]
  - Product prescribing issue [Unknown]
